FAERS Safety Report 8677692 (Version 7)
Quarter: 2015Q1

REPORT INFORMATION
  Report Type: Spontaneous
  Country: US (occurrence: None)
  Receive Date: 20120705
  Receipt Date: 20150120
  Transmission Date: 20150721
  Serious: Yes (Hospitalization, Other)
  Sender: FDA-Public Use
  Company Number: CIP11002940

PATIENT
  Age: 88 Year
  Sex: Female
  Weight: 63.5 kg

DRUGS (16)
  1. ACTONEL [Suspect]
     Active Substance: RISEDRONATE SODIUM
     Route: 048
     Dates: start: 200402
  2. B COMPLEX WITH VITAMIN C [Concomitant]
  3. CALCIUM [Concomitant]
     Active Substance: CALCIUM
  4. BORON [Concomitant]
     Active Substance: BORON
  5. WHEAT GERM OIL [Concomitant]
     Active Substance: WHEAT GERM OIL
  6. MAGNESIUM [Concomitant]
     Active Substance: MAGNESIUM
  7. VITAMIN D [Concomitant]
     Active Substance: CHOLECALCIFEROL
  8. ASPRIN [Concomitant]
     Active Substance: ASPIRIN
  9. CENTRUM SILVER [Concomitant]
     Active Substance: VITAMINS
  10. SYNTHROID [None]
     Active Substance: LEVOTHYROXINE SODIUM
  11. CARAFATE [Concomitant]
     Active Substance: SUCRALFATE
  12. ACTONEL [Suspect]
     Active Substance: RISEDRONATE SODIUM
     Indication: OSTEOPOROSIS
     Dosage: UNKNOWN DOSAGE/ONCE MONTHLY, ORAL
     Route: 048
     Dates: start: 2010, end: 201010
  13. FOSAMAX [Suspect]
     Active Substance: ALENDRONATE SODIUM
     Indication: OSTEOPOROSIS
     Dosage: UNK, 1/WEEK, ORAL
     Route: 048
     Dates: start: 200402
  14. ALENDRONATE SODIUM. [Suspect]
     Active Substance: ALENDRONATE SODIUM
     Indication: OSTEOPOROSIS
     Dosage: 70 MG, 1 /WEEK, ORAL
     Route: 048
     Dates: start: 20091204
  15. COD LIVER OIL [Concomitant]
     Active Substance: COD LIVER OIL
  16. GLUCOSAMINE [Concomitant]
     Active Substance: GLUCOSAMINE

REACTIONS (8)
  - Femur fracture [None]
  - Fall [None]
  - Atypical femur fracture [None]
  - Pain in extremity [None]
  - Pathological fracture [None]
  - Stress fracture [None]
  - Bone cyst [None]
  - Sciatica [None]

NARRATIVE: CASE EVENT DATE: 200912
